FAERS Safety Report 13149740 (Version 1)
Quarter: 2017Q1

REPORT INFORMATION
  Report Type: Spontaneous
  Country: US (occurrence: US)
  Receive Date: 20170124
  Receipt Date: 20170124
  Transmission Date: 20170428
  Serious: Yes (Life-Threatening, Other)
  Sender: FDA-Public Use
  Company Number: None

PATIENT
  Age: 47 Year
  Sex: Female
  Weight: 90.8 kg

DRUGS (3)
  1. TANZEUM [Suspect]
     Active Substance: ALBIGLUTIDE
     Indication: GLUCOSE TOLERANCE IMPAIRED
     Route: 058
     Dates: start: 20160608, end: 20170118
  2. TANZEUM [Suspect]
     Active Substance: ALBIGLUTIDE
     Indication: OBESITY
     Route: 058
     Dates: start: 20160608, end: 20170118
  3. TANZEUM [Suspect]
     Active Substance: ALBIGLUTIDE
     Indication: HYPERGLYCAEMIA
     Route: 058
     Dates: start: 20160608, end: 20170118

REACTIONS (3)
  - Abdominal pain lower [None]
  - Diarrhoea [None]
  - Vomiting [None]

NARRATIVE: CASE EVENT DATE: 20170118
